FAERS Safety Report 9152748 (Version 1)
Quarter: 2013Q1

REPORT INFORMATION
  Report Type: Spontaneous
  Country: US (occurrence: US)
  Receive Date: 20130308
  Receipt Date: 20130308
  Transmission Date: 20140127
  Serious: Yes (Hospitalization, Other)
  Sender: FDA-Public Use
  Company Number: PHEH2013US005524

PATIENT
  Age: 17 Year
  Sex: Male

DRUGS (1)
  1. TOBI [Suspect]
     Indication: BRONCHIECTASIS
     Dosage: 300 UKN, BID
     Dates: end: 201301

REACTIONS (2)
  - Nervous system disorder [Unknown]
  - Blood glucose increased [Unknown]
